FAERS Safety Report 11775324 (Version 5)
Quarter: 2016Q3

REPORT INFORMATION
  Report Type: Spontaneous
  Country: US (occurrence: US)
  Receive Date: 20151125
  Receipt Date: 20160920
  Transmission Date: 20161109
  Serious: No
  Sender: FDA-Public Use
  Company Number: US-ACTELION PHARMACEUTICALS US, INC.-A-NJ2015-120449

PATIENT
  Age: 39 Year
  Sex: Female

DRUGS (4)
  1. LETAIRIS [Concomitant]
     Active Substance: AMBRISENTAN
  2. ADCIRCA [Concomitant]
     Active Substance: TADALAFIL
  3. XARELTO [Concomitant]
     Active Substance: RIVAROXABAN
  4. VELETRI [Suspect]
     Active Substance: EPOPROSTENOL
     Indication: PULMONARY ARTERIAL HYPERTENSION
     Dosage: 30 NG/KG, PER MIN
     Route: 042
     Dates: start: 20111104

REACTIONS (13)
  - Flushing [Unknown]
  - Erythema [Unknown]
  - Feeling cold [Unknown]
  - Fatigue [Unknown]
  - Myalgia [Unknown]
  - Rash macular [Unknown]
  - Dyspepsia [Recovering/Resolving]
  - Nausea [Unknown]
  - Nasopharyngitis [Unknown]
  - Hyperaesthesia [Unknown]
  - Pain in extremity [Unknown]
  - Cough [Unknown]
  - Dyspnoea exertional [Unknown]
